FAERS Safety Report 15425650 (Version 1)
Quarter: 2018Q3

REPORT INFORMATION
  Report Type: Report from Study
  Country: US (occurrence: US)
  Receive Date: 20180925
  Receipt Date: 20180925
  Transmission Date: 20181010
  Serious: Yes (Hospitalization)
  Sender: FDA-Public Use
  Company Number: US-ASTRAZENECA-2018SF20623

PATIENT
  Age: 61 Year
  Sex: Male
  Weight: 91.2 kg

DRUGS (1)
  1. LYNPARZA [Suspect]
     Active Substance: OLAPARIB
     Indication: OFF LABEL USE
     Route: 048

REACTIONS (1)
  - Lung infection [Recovered/Resolved with Sequelae]
